FAERS Safety Report 18314689 (Version 2)
Quarter: 2020Q4

REPORT INFORMATION
  Report Type: Report from Study
  Country: BR (occurrence: BR)
  Receive Date: 20200926
  Receipt Date: 20201123
  Transmission Date: 20210113
  Serious: Yes (Hospitalization, Other)
  Sender: FDA-Public Use
  Company Number: BR-UCBSA-2020028254

PATIENT
  Age: 58 Year
  Sex: Female
  Weight: 50 kg

DRUGS (6)
  1. CERTOLIZUMAB PEGOL RA [Suspect]
     Active Substance: CERTOLIZUMAB PEGOL
     Indication: RHEUMATOID ARTHRITIS
     Dosage: 400 MILLIGRAM, EV 15 DAYS
     Route: 058
  2. DIPIRONA [Concomitant]
     Active Substance: METAMIZOLE
     Indication: PAIN
     Dosage: 50 MILLIGRAM, UNK
     Route: 048
  3. MIRTAZAPINE. [Concomitant]
     Active Substance: MIRTAZAPINE
     Indication: DEPRESSION
     Dosage: 30 MILLIGRAM, ONCE DAILY (QD)
     Route: 048
     Dates: start: 20200116
  4. CERTOLIZUMAB PEGOL RA [Suspect]
     Active Substance: CERTOLIZUMAB PEGOL
     Dosage: UNK, MONTHLY (QM)
     Route: 058
     Dates: end: 202011
  5. IBUPROFENO [Concomitant]
     Active Substance: IBUPROFEN
     Indication: PAIN
     Dosage: 70 MILLIGRAM, 4X/DAY (QID)
     Route: 048
  6. CYMBI [AMPICILLIN TRIHYDRATE] [Concomitant]
     Indication: ANTIDEPRESSANT THERAPY
     Dosage: UNK

REACTIONS (7)
  - Chest pain [Recovered/Resolved]
  - Rheumatoid arthritis [Not Recovered/Not Resolved]
  - Hypertension [Not Recovered/Not Resolved]
  - Urticaria [Not Recovered/Not Resolved]
  - Drug ineffective [Unknown]
  - Labyrinthitis [Not Recovered/Not Resolved]
  - Dizziness [Not Recovered/Not Resolved]

NARRATIVE: CASE EVENT DATE: 20200807
